FAERS Safety Report 4922921-3 (Version None)
Quarter: 2006Q1

REPORT INFORMATION
  Report Type: 
  Country: None (occurrence: None)
  Receive Date: 20060224
  Receipt Date: 20051122
  Transmission Date: 20060701
  Serious: Yes (Other)
  Sender: FDA-Public Use
  Company Number: US-MERCK-0511USA03806

PATIENT
  Age: 57 Year
  Sex: Male
  Weight: 88 kg

DRUGS (4)
  1. VIOXX [Suspect]
     Indication: ARTHRITIS
     Route: 048
     Dates: start: 20020616, end: 20040926
  2. VIOXX [Suspect]
     Route: 048
     Dates: start: 20030101, end: 20040926
  3. VIOXX [Suspect]
     Indication: BACK PAIN
     Route: 048
     Dates: start: 20020616, end: 20040926
  4. VIOXX [Suspect]
     Route: 048
     Dates: start: 20030101, end: 20040926

REACTIONS (1)
  - MYOCARDIAL INFARCTION [None]
